FAERS Safety Report 4647236-2 (Version None)
Quarter: 2005Q2

REPORT INFORMATION
  Report Type: 
  Country: None (occurrence: None)
  Receive Date: 20050426
  Receipt Date: 20050415
  Transmission Date: 20051028
  Serious: No
  Sender: FDA-Public Use
  Company Number: 2005-127499-NL

PATIENT
  Sex: Female

DRUGS (11)
  1. MIRTAZAPINE [Suspect]
     Indication: DEPRESSION
     Dosage: DF/15 MG
     Route: 048
     Dates: start: 20050326, end: 20050327
  2. ACETYL SALICYLIC ACID USP BAT [Concomitant]
  3. BENDROFLUMETHIAZIDE [Concomitant]
  4. CANDESARTAN [Concomitant]
  5. GLICLAZIDE [Concomitant]
  6. LANSOPRAZOLE [Concomitant]
  7. ISOSORBIDE MONONITRATE [Concomitant]
  8. PAROXETINE [Concomitant]
  9. SIMVASTATIN [Concomitant]
  10. DILTIAZEM HYDROCHLORIDE [Concomitant]
  11. ZOPICLONE [Concomitant]

REACTIONS (4)
  - CIRCULATORY COLLAPSE [None]
  - INJURY [None]
  - LOSS OF CONSCIOUSNESS [None]
  - RASH [None]
